FAERS Safety Report 5795895-3 (Version None)
Quarter: 2008Q3

REPORT INFORMATION
  Report Type: 
  Country: None (occurrence: None)
  Receive Date: 20080701
  Receipt Date: 20080318
  Transmission Date: 20090109
  Serious: No
  Sender: FDA-Public Use
  Company Number: US-BAYER-200817614NA

PATIENT
  Age: 21 Year
  Sex: Female
  Weight: 64 kg

DRUGS (3)
  1. MIRENA [Suspect]
     Indication: CONTRACEPTION
     Route: 015
  2. MULTI-VITAMIN [Concomitant]
     Route: 048
  3. DEPO [Concomitant]
     Route: 065

REACTIONS (6)
  - BACK PAIN [None]
  - HEADACHE [None]
  - IRRITABILITY [None]
  - IUCD COMPLICATION [None]
  - NAUSEA [None]
  - WEIGHT INCREASED [None]
